FAERS Safety Report 5350616-3 (Version None)
Quarter: 2007Q2

REPORT INFORMATION
  Report Type: 
  Country: None (occurrence: None)
  Receive Date: 20070516
  Receipt Date: 20061201
  Transmission Date: 20071010
  Serious: Yes (Other)
  Sender: FDA-Public Use
  Company Number: 2006150499

PATIENT
  Age: 22 Year
  Sex: Female

DRUGS (2)
  1. DEPO-PROVERA [Suspect]
     Dosage: INTRAMUSCULAR
     Route: 030
     Dates: start: 20011201, end: 20011201
  2. DEPO-PROVERA [Suspect]
     Dosage: INTRAMUSCULAR
     Route: 030
     Dates: start: 20050301, end: 20050301

REACTIONS (1)
  - OSTEOPOROSIS [None]
